FAERS Safety Report 10574230 (Version 1)
Quarter: 2014Q4

REPORT INFORMATION
  Report Type: Spontaneous
  Country: US (occurrence: US)
  Receive Date: 20141110
  Receipt Date: 20141110
  Transmission Date: 20150529
  Serious: No
  Sender: FDA-Public Use
  Company Number: US-BAYER-2014-164971

PATIENT
  Age: 43 Year
  Sex: Female
  Weight: 113.38 kg

DRUGS (3)
  1. PROZAC [Concomitant]
     Active Substance: FLUOXETINE HYDROCHLORIDE
  2. LEVOTHYROXINE [Concomitant]
     Active Substance: LEVOTHYROXINE
  3. ALEVE [Suspect]
     Active Substance: NAPROXEN SODIUM
     Indication: OSTEITIS
     Dosage: 1 DF, EVERYDAY FOR ABOUT 2 WEEKS, THEN STOPS, THEN RESTARTS FOR 2 WEEKS
     Route: 048
     Dates: start: 201403

REACTIONS (2)
  - Medication error [Unknown]
  - Incorrect drug administration duration [Unknown]

NARRATIVE: CASE EVENT DATE: 201403
